FAERS Safety Report 5059966-1 (Version None)
Quarter: 2006Q3

REPORT INFORMATION
  Report Type: 
  Country: None (occurrence: None)
  Receive Date: 20060719
  Receipt Date: 20060706
  Transmission Date: 20061208
  Serious: Yes (Death)
  Sender: FDA-Public Use
  Company Number: HQWYE037708JUN06

PATIENT
  Age: 75 Year
  Sex: Male

DRUGS (1)
  1. CORDARONE [Suspect]
     Indication: ARRHYTHMIA
     Dosage: 200 MG TABLET ORAL
     Route: 048
     Dates: start: 20050101

REACTIONS (5)
  - BLOOD GASES ABNORMAL [None]
  - INTERSTITIAL LUNG DISEASE [None]
  - PO2 ABNORMAL [None]
  - RESPIRATORY DISORDER [None]
  - THYROID DISORDER [None]
